FAERS Safety Report 15187643 (Version 9)
Quarter: 2019Q2

REPORT INFORMATION
  Report Type: Spontaneous
  Country: US (occurrence: US)
  Receive Date: 20180724
  Receipt Date: 20190523
  Transmission Date: 20190711
  Serious: Yes (Hospitalization, Other)
  Sender: FDA-Public Use
  Company Number: US-BRISTOL-MYERS SQUIBB COMPANY-BMS-2018-068830

PATIENT
  Age: 31 Year
  Sex: Female
  Weight: 65.31 kg

DRUGS (2)
  1. ORENCIA [Suspect]
     Active Substance: ABATACEPT
     Indication: RHEUMATOID ARTHRITIS
     Dosage: 125 MG, QWK
     Route: 058
     Dates: start: 201808
  2. ORENCIA [Suspect]
     Active Substance: ABATACEPT
     Indication: PRODUCT USED FOR UNKNOWN INDICATION
     Dosage: 125 MG, QWK
     Route: 058
     Dates: start: 201905

REACTIONS (15)
  - Temporomandibular joint syndrome [Unknown]
  - Migraine [Unknown]
  - Conjunctivitis [Unknown]
  - Pharyngitis [Unknown]
  - Skin disorder [Unknown]
  - Nasopharyngitis [Unknown]
  - Dysphonia [Unknown]
  - Eating disorder [Unknown]
  - Kidney infection [Unknown]
  - Hordeolum [Unknown]
  - Swelling face [Unknown]
  - Fungal infection [Unknown]
  - Urinary tract infection [Unknown]
  - Herpes zoster [Unknown]
  - Cystitis [Unknown]

NARRATIVE: CASE EVENT DATE: 20181116
